FAERS Safety Report 12006465 (Version 2)
Quarter: 2016Q1

REPORT INFORMATION
  Report Type: Spontaneous
  Country: JP (occurrence: JP)
  Receive Date: 20160204
  Receipt Date: 20160219
  Transmission Date: 20160526
  Serious: Yes (Other)
  Sender: FDA-Public Use
  Company Number: JP-GILEAD-2015-0183727

PATIENT
  Age: 85 Year
  Sex: Male
  Weight: 71 kg

DRUGS (9)
  1. PIARLE [Concomitant]
     Indication: CONSTIPATION
     Dosage: 10.2 G, UNK
     Route: 048
     Dates: start: 20050203
  2. TAURINE [Concomitant]
     Active Substance: TAURINE
     Indication: HEPATIC FUNCTION ABNORMAL
     Dosage: 3.06 G, UNK
     Route: 048
     Dates: start: 20050203
  3. ADELAVIN NO.9 [Concomitant]
     Indication: CHRONIC HEPATITIS
     Dosage: 2 ML, UNK
     Route: 042
     Dates: start: 20050203, end: 20151211
  4. GLYPHAGEN [Concomitant]
     Indication: CHRONIC HEPATITIS
     Dosage: 100 ML, UNK
     Route: 042
     Dates: start: 20050203, end: 20151211
  5. CITRIC ACID [Concomitant]
     Active Substance: CITRIC ACID MONOHYDRATE
     Indication: HYPERURICAEMIA
     Dosage: 6.0 G, UNK
     Route: 048
     Dates: start: 20050203
  6. HARVONI [Suspect]
     Active Substance: LEDIPASVIR\SOFOSBUVIR
     Indication: CHRONIC HEPATITIS C
     Dosage: UNK
     Route: 048
     Dates: start: 20150905, end: 20151127
  7. MAGNESIUM OXIDE HEAVY [Concomitant]
     Active Substance: MAGNESIUM OXIDE
     Indication: CONSTIPATION
     Dosage: 3 DF, UNK
     Route: 048
     Dates: start: 20050203
  8. BIOFERMIN                          /01617201/ [Concomitant]
     Active Substance: BACILLUS SUBTILIS\LACTOBACILLUS ACIDOPHILUS\STREPTOCOCCUS FAECAIS
     Indication: CONSTIPATION
     Dosage: 3 DF, UNK
     Route: 048
     Dates: start: 20050203
  9. TATHION [Concomitant]
     Active Substance: GLUTATHIONE
     Indication: CHRONIC HEPATITIS
     Dosage: 200 MG, UNK
     Route: 042
     Dates: start: 20050203, end: 20151211

REACTIONS (1)
  - Age-related macular degeneration [Not Recovered/Not Resolved]

NARRATIVE: CASE EVENT DATE: 20151024
